FAERS Safety Report 6153437-7 (Version None)
Quarter: 2009Q2

REPORT INFORMATION
  Report Type: 
  Country: None (occurrence: None)
  Receive Date: 20090413
  Receipt Date: 20090403
  Transmission Date: 20091009
  Serious: Yes (Hospitalization)
  Sender: FDA-Public Use
  Company Number: US-ABBOTT-09P-163-0566261-00

PATIENT
  Sex: Female
  Weight: 60.836 kg

DRUGS (5)
  1. HUMIRA [Suspect]
     Indication: CROHN'S DISEASE
     Route: 058
     Dates: start: 20071017, end: 20080501
  2. HUMIRA [Suspect]
     Route: 058
     Dates: start: 20080501, end: 20080901
  3. MERCAPTOPURINE [Concomitant]
     Indication: CROHN'S DISEASE
     Route: 048
  4. NEURONTIN [Concomitant]
     Indication: DRUG USE FOR UNKNOWN INDICATION
     Route: 048
     Dates: end: 20080901
  5. NEURONTIN [Concomitant]
     Route: 048
     Dates: start: 20080901

REACTIONS (7)
  - DYSPHAGIA [None]
  - GASTRITIS [None]
  - HERPES ZOSTER [None]
  - KIDNEY INFECTION [None]
  - KNEE ARTHROPLASTY [None]
  - NEPHROLITHIASIS [None]
  - OESOPHAGEAL CANDIDIASIS [None]
